FAERS Safety Report 13309196 (Version 1)
Quarter: 2017Q1

REPORT INFORMATION
  Report Type: Spontaneous
  Country: US (occurrence: US)
  Receive Date: 20170308
  Receipt Date: 20170308
  Transmission Date: 20170428
  Serious: Yes (Hospitalization)
  Sender: FDA-Public Use
  Company Number: None

PATIENT
  Age: 70 Year
  Sex: Male

DRUGS (22)
  1. PREDNISONE 5MG TAB [Suspect]
     Active Substance: PREDNISONE
     Indication: LUNG TRANSPLANT
     Route: 048
     Dates: start: 20150506
  2. MYCOPHENOLATE 500MG TAB [Suspect]
     Active Substance: MYCOPHENOLIC ACID
     Indication: LUNG TRANSPLANT
     Route: 048
     Dates: start: 20150319
  3. MAG OXIDE [Concomitant]
     Active Substance: MAGNESIUM OXIDE
  4. TACROLIMUS 0.5MG CAP [Suspect]
     Active Substance: TACROLIMUS
     Indication: LUNG TRANSPLANT
     Dosage: 2.5MG QMORNING ORAL
     Route: 048
     Dates: start: 20150324
  5. PANTOPRAZOLE [Concomitant]
     Active Substance: PANTOPRAZOLE SODIUM
  6. FERROUS SULF [Concomitant]
  7. TACROLIMUS 1MG CAP [Suspect]
     Active Substance: TACROLIMUS
     Indication: LUNG TRANSPLANT
     Dosage: 2MG QEVENING ORAL
     Route: 048
     Dates: start: 20150324
  8. VITAMIN C [Concomitant]
     Active Substance: ASCORBIC ACID
  9. TACROLIMUS 0.5MG CAP [Suspect]
     Active Substance: TACROLIMUS
     Indication: LIVER TRANSPLANT
     Dosage: 2.5MG QMORNING ORAL
     Route: 048
     Dates: start: 20150324
  10. SMZ/TMP DS [Concomitant]
     Active Substance: SULFAMETHOXAZOLE\TRIMETHOPRIM
  11. AMIODARONE [Concomitant]
     Active Substance: AMIODARONE
  12. PREDNISONE 5MG TAB [Suspect]
     Active Substance: PREDNISONE
     Indication: LIVER TRANSPLANT
     Route: 048
     Dates: start: 20150506
  13. CALCIUM [Concomitant]
     Active Substance: CALCIUM
  14. CLOTRIMAZOLE. [Concomitant]
     Active Substance: CLOTRIMAZOLE
  15. TACROLIMUS 1MG CAP [Suspect]
     Active Substance: TACROLIMUS
     Indication: LIVER TRANSPLANT
     Dosage: 2MG QEVENING ORAL
     Route: 048
     Dates: start: 20150324
  16. METOPROLOL. [Concomitant]
     Active Substance: METOPROLOL
  17. FUROSEMIDE. [Concomitant]
     Active Substance: FUROSEMIDE
  18. ASPIRIN. [Concomitant]
     Active Substance: ASPIRIN
  19. ACYCLOVIR. [Concomitant]
     Active Substance: ACYCLOVIR
  20. MULTI CAP COMPLETE [Concomitant]
  21. ATORVASTATIN [Concomitant]
     Active Substance: ATORVASTATIN
  22. MYCOPHENOLATE 500MG TAB [Suspect]
     Active Substance: MYCOPHENOLIC ACID
     Indication: LIVER TRANSPLANT
     Route: 048
     Dates: start: 20150319

REACTIONS (3)
  - Diarrhoea [None]
  - Influenza [None]
  - Abdominal discomfort [None]

NARRATIVE: CASE EVENT DATE: 201702
